FAERS Safety Report 5799293-8 (Version None)
Quarter: 2008Q3

REPORT INFORMATION
  Report Type: 
  Country: None (occurrence: None)
  Receive Date: 20080702
  Receipt Date: 20080623
  Transmission Date: 20090109
  Serious: Yes (Other)
  Sender: FDA-Public Use
  Company Number: US-PFIZER INC-2008052429

PATIENT
  Sex: Female
  Weight: 77 kg

DRUGS (8)
  1. CELEBREX [Suspect]
     Indication: BACK PAIN
  2. AZITHROMYCIN [Interacting]
     Indication: STAPHYLOCOCCAL INFECTION
     Dosage: DAILY DOSE:500MG
  3. HYDROCODONE [Concomitant]
  4. GABAPENTIN [Concomitant]
  5. EFFEXOR [Concomitant]
  6. ALPRAZOLAM [Concomitant]
  7. ZETIA [Concomitant]
  8. METOPROLOL SUCCINATE [Concomitant]

REACTIONS (5)
  - BLOOD CHOLESTEROL INCREASED [None]
  - DRUG INTERACTION [None]
  - PRURITUS [None]
  - RASH [None]
  - STAPHYLOCOCCAL INFECTION [None]
